FAERS Safety Report 6547670-X (Version None)
Quarter: 2010Q1

REPORT INFORMATION
  Report Type: 
  Country: None (occurrence: None)
  Receive Date: 20100123
  Receipt Date: 20100113
  Transmission Date: 20100710
  Serious: Yes (Other)
  Sender: FDA-Public Use
  Company Number: US-JNJFOC-20100106169

PATIENT
  Age: 17 Year
  Sex: Female

DRUGS (1)
  1. DURAGESIC-100 [Suspect]
     Indication: DRUG USE FOR UNKNOWN INDICATION
     Route: 055

REACTIONS (5)
  - CYANOSIS [None]
  - EYE ROLLING [None]
  - FALL [None]
  - INTENTIONAL DRUG MISUSE [None]
  - PALLOR [None]
